FAERS Safety Report 4943058-3 (Version None)
Quarter: 2006Q1

REPORT INFORMATION
  Report Type: 
  Country: None (occurrence: None)
  Receive Date: 20060314
  Receipt Date: 20060104
  Transmission Date: 20060701
  Serious: Yes (Death)
  Sender: FDA-Public Use
  Company Number: US-BRISTOL-MYERS SQUIBB COMPANY-13235593

PATIENT
  Age: 52 Year
  Sex: Male
  Weight: 160 kg

DRUGS (5)
  1. GLUCOPHAGE XR [Suspect]
     Indication: DIABETES MELLITUS
     Route: 048
     Dates: start: 20030311
  2. LIPITOR [Concomitant]
     Dates: start: 20040115
  3. ACIPHEX [Concomitant]
     Dates: start: 20051110
  4. METOPROLOL [Concomitant]
     Dates: start: 20021001
  5. BENAZEPRIL HCL [Concomitant]
     Dates: start: 20020709

REACTIONS (1)
  - DEATH [None]
